FAERS Safety Report 15022734 (Version 1)
Quarter: 2018Q2

REPORT INFORMATION
  Report Type: Report from Study
  Country: US (occurrence: US)
  Receive Date: 20180618
  Receipt Date: 20180618
  Transmission Date: 20180711
  Serious: Yes (Other)
  Sender: FDA-Public Use
  Company Number: PHEH2018US022995

PATIENT
  Sex: Female

DRUGS (1)
  1. COSENTYX [Suspect]
     Active Substance: SECUKINUMAB
     Indication: PSORIATIC ARTHROPATHY
     Dosage: 150 MG, QMO
     Route: 065

REACTIONS (9)
  - Pain [Unknown]
  - Peripheral swelling [Unknown]
  - Burning sensation [Unknown]
  - Arthropathy [Unknown]
  - Flank pain [Unknown]
  - Spinal cord compression [Unknown]
  - Monoplegia [Unknown]
  - Hypoaesthesia [Unknown]
  - Pancreatitis [Not Recovered/Not Resolved]
